FAERS Safety Report 21966694 (Version 1)
Quarter: 2023Q1

REPORT INFORMATION
  Report Type: Spontaneous
  Country: US (occurrence: US)
  Receive Date: 20230208
  Receipt Date: 20230208
  Transmission Date: 20230418
  Serious: Yes (Other)
  Sender: FDA-Public Use
  Company Number: US-SANOFI-01479840

PATIENT
  Age: 75 Year
  Sex: Female

DRUGS (2)
  1. LANTUS SOLOSTAR [Suspect]
     Active Substance: INSULIN GLARGINE
     Indication: Type 2 diabetes mellitus
     Dosage: UNK
  2. LANTUS SOLOSTAR [Suspect]
     Active Substance: INSULIN GLARGINE
     Dosage: 12 UNITS BID
     Dates: start: 2022

REACTIONS (6)
  - Blindness unilateral [Unknown]
  - Cataract [Unknown]
  - Skin swelling [Unknown]
  - Skin ulcer [Unknown]
  - Product storage error [Unknown]
  - Inappropriate schedule of product administration [Unknown]
